FAERS Safety Report 16304156 (Version 1)
Quarter: 2019Q2

REPORT INFORMATION
  Report Type: Spontaneous
  Country: US (occurrence: US)
  Receive Date: 20190405
  Receipt Date: 20190405
  Transmission Date: 20190711
  Serious: Yes (Disabling)
  Sender: FDA-Public Use
  Company Number: None

PATIENT
  Age: 65 Year
  Sex: Female
  Weight: 70.31 kg

DRUGS (6)
  1. BONIVA [Suspect]
     Active Substance: IBANDRONATE SODIUM
     Indication: OSTEOPOROSIS
     Route: 048
     Dates: start: 20180201, end: 20190101
  2. VITAMIN D [Concomitant]
     Active Substance: VITAMIN D NOS
  3. GLUCOSAMIN CHONDROTIN [Concomitant]
  4. BIOTIN [Concomitant]
     Active Substance: BIOTIN
  5. COLLAGEN [Concomitant]
     Active Substance: COLLAGEN
  6. CALCIUM [Concomitant]
     Active Substance: CALCIUM

REACTIONS (6)
  - Weight bearing difficulty [None]
  - Loss of personal independence in daily activities [None]
  - Tendon pain [None]
  - Walking aid user [None]
  - Arthralgia [None]
  - Bursitis [None]

NARRATIVE: CASE EVENT DATE: 20180606
